FAERS Safety Report 20781216 (Version 1)
Quarter: 2022Q2

REPORT INFORMATION
  Report Type: Report from Study
  Country: US (occurrence: US)
  Receive Date: 20220504
  Receipt Date: 20220504
  Transmission Date: 20220721
  Serious: Yes (Other)
  Sender: FDA-Public Use
  Company Number: US-BRISTOL-MYERS SQUIBB COMPANY-2022-024624

PATIENT
  Age: 63 Year
  Sex: Male
  Weight: 117.9 kg

DRUGS (1)
  1. REVLIMID [Suspect]
     Active Substance: LENALIDOMIDE
     Indication: Plasma cell myeloma
     Dosage: 28/BTL??FOR 14 DAYS OFF 7 DAYS
     Route: 048
     Dates: start: 202203

REACTIONS (3)
  - Cognitive disorder [Unknown]
  - Brain injury [Unknown]
  - Off label use [Unknown]
